FAERS Safety Report 6679038-X (Version None)
Quarter: 2010Q2

REPORT INFORMATION
  Report Type: 
  Country: None (occurrence: None)
  Receive Date: 20100413
  Receipt Date: 20100401
  Transmission Date: 20101027
  Serious: Yes (Hospitalization)
  Sender: FDA-Public Use
  Company Number: PHHY2010FR20294

PATIENT
  Sex: Female

DRUGS (3)
  1. TAREG [Suspect]
     Indication: HYPERTENSION
     Dosage: 80 MG, QD
     Route: 048
     Dates: start: 20100203, end: 20100206
  2. ZOVIRAX [Suspect]
     Indication: ENCEPHALITIS
     Dosage: 500 MG, TID
     Route: 042
     Dates: start: 20100125, end: 20100207
  3. TRIFLUCAN [Concomitant]
     Indication: ORAL CANDIDIASIS
     Dosage: UNK

REACTIONS (7)
  - APTYALISM [None]
  - DIALYSIS [None]
  - HYPERTENSION [None]
  - PYREXIA [None]
  - RENAL FAILURE ACUTE [None]
  - SOMNOLENCE [None]
  - URINARY TRACT INFECTION [None]
